FAERS Safety Report 5396947-2 (Version None)
Quarter: 2007Q3

REPORT INFORMATION
  Report Type: 
  Country: None (occurrence: None)
  Receive Date: 20070725
  Receipt Date: 20070712
  Transmission Date: 20080115
  Serious: Yes (Other)
  Sender: FDA-Public Use
  Company Number: GB-ELI_LILLY_AND_COMPANY-GB200612001202

PATIENT
  Age: 14 Year
  Sex: Male
  Weight: 53.8 kg

DRUGS (2)
  1. STRATTERA [Suspect]
     Indication: ATTENTION DEFICIT/HYPERACTIVITY DISORDER
     Dosage: UNK MG, DAILY (1/D)
     Route: 048
     Dates: end: 20070101
  2. STRATTERA [Suspect]
     Dosage: 4 DOSES
     Route: 048
     Dates: start: 20060425, end: 20060823

REACTIONS (6)
  - ABNORMAL BEHAVIOUR [None]
  - HYPOAESTHESIA [None]
  - INCORRECT DOSE ADMINISTERED [None]
  - MIGRAINE [None]
  - OPTIC DISC DRUSEN [None]
  - PAPILLOEDEMA [None]
